FAERS Safety Report 5264670-0 (Version None)
Quarter: 2007Q1

REPORT INFORMATION
  Report Type: 
  Country: None (occurrence: None)
  Receive Date: 20070314
  Receipt Date: 20070116
  Transmission Date: 20070707
  Serious: Yes (Hospitalization, Other)
  Sender: FDA-Public Use
  Company Number: US-BAYER-200616687BWH

PATIENT
  Age: 91 Year
  Sex: Male

DRUGS (4)
  1. NEXAVAR [Suspect]
     Indication: METASTATIC RENAL CELL CARCINOMA
     Dosage: TOTAL DAILY DOSE: 800 MG  UNIT DOSE: 200 MG
     Route: 048
     Dates: start: 20060301, end: 20061201
  2. NEXAVAR [Suspect]
     Dosage: TOTAL DAILY DOSE: 200 MG  UNIT DOSE: 200 MG
     Route: 048
     Dates: start: 20061201, end: 20070108
  3. ENALAPRIL MALEATE [Concomitant]
  4. DILTIAZEM [Concomitant]

REACTIONS (11)
  - ABDOMINAL DISTENSION [None]
  - BLOOD PRESSURE INCREASED [None]
  - CELLULITIS [None]
  - CYSTITIS [None]
  - JOINT SWELLING [None]
  - LOCAL SWELLING [None]
  - METASTASES TO LUNG [None]
  - OEDEMA PERIPHERAL [None]
  - RASH [None]
  - SKIN LESION [None]
  - SKIN REACTION [None]
